FAERS Safety Report 9787701 (Version 1)
Quarter: 2013Q4

REPORT INFORMATION
  Report Type: Spontaneous
  Country: US (occurrence: None)
  Receive Date: 20131226
  Receipt Date: 20131226
  Transmission Date: 20140711
  Serious: Yes (Congenital Anomaly)
  Sender: FDA-Public Use
  Company Number: FK201305470

PATIENT
  Age: 18 Hour
  Sex: Female

DRUGS (1)
  1. V ALPROATE [Suspect]
     Indication: CONVULSION

REACTIONS (5)
  - Foetal anticonvulsant syndrome [None]
  - Respiratory distress [None]
  - Cyanosis [None]
  - Cardiac failure [None]
  - Maternal drugs affecting foetus [None]
